FAERS Safety Report 6830657-7 (Version None)
Quarter: 2010Q3

REPORT INFORMATION
  Report Type: 
  Country: None (occurrence: None)
  Receive Date: 20100712
  Receipt Date: 20100628
  Transmission Date: 20110219
  Serious: Yes (Hospitalization, Other)
  Sender: FDA-Public Use
  Company Number: US-BAYER-200938951NA

PATIENT
  Age: 23 Year
  Sex: Female
  Weight: 95 kg

DRUGS (19)
  1. YASMIN [Suspect]
     Indication: MENSTRUATION IRREGULAR
     Route: 048
     Dates: start: 20071001, end: 20090401
  2. YAZ [Suspect]
     Indication: PRODUCT USED FOR UNKNOWN INDICATION
     Route: 048
  3. OCELLA [Suspect]
     Indication: MENSTRUATION IRREGULAR
  4. SINGULAIR [Concomitant]
     Dates: start: 20080101
  5. DOXYCYCLINE [Concomitant]
     Dates: start: 20081201
  6. OFELIA [Concomitant]
     Dates: start: 20081103
  7. DIFLUCAN [Concomitant]
     Indication: VULVOVAGINAL PRURITUS
  8. AMOXICILLIN [Concomitant]
     Dates: start: 20071001
  9. CEPHALEXIN [Concomitant]
     Indication: STAPHYLOCOCCAL PHARYNGITIS
     Dates: start: 20080901
  10. CEPHALEXIN [Concomitant]
     Dates: start: 20071101
  11. AZITHROMYCIN [Concomitant]
     Dates: start: 20080201
  12. AZITHROMYCIN [Concomitant]
     Dates: start: 20071101
  13. OXYCODONE HCL [Concomitant]
     Indication: PAIN
     Dates: start: 20081201
  14. OXYCODONE HCL [Concomitant]
     Dates: start: 20071201
  15. BENZONATE [Concomitant]
     Dates: start: 20080201
  16. HYDROCODONE BITARTRATE [Concomitant]
     Indication: PAIN
  17. LUNESTA [Concomitant]
     Dates: start: 20090401
  18. PROZAC [Concomitant]
  19. ZYRTEC-D 12 HOUR [Concomitant]

REACTIONS (17)
  - ABDOMINAL DISCOMFORT [None]
  - ABDOMINAL PAIN UPPER [None]
  - ABNORMAL FAECES [None]
  - BOWEL MOVEMENT IRREGULARITY [None]
  - CHOLECYSTITIS CHRONIC [None]
  - DEFAECATION URGENCY [None]
  - EPIGASTRIC DISCOMFORT [None]
  - ERYTHEMA [None]
  - GALLBLADDER CHOLESTEROLOSIS [None]
  - GALLBLADDER NON-FUNCTIONING [None]
  - GASTROINTESTINAL INJURY [None]
  - NAUSEA [None]
  - PREGNANCY TEST URINE POSITIVE [None]
  - PURULENT DISCHARGE [None]
  - SCAB [None]
  - SCAR [None]
  - WOUND INFECTION [None]
